FAERS Safety Report 8313325-4 (Version None)
Quarter: 2012Q2

REPORT INFORMATION
  Report Type: 
  Country: None (occurrence: None)
  Receive Date: 20120425
  Receipt Date: 20120425
  Transmission Date: 20120825
  Serious: Yes (Disabling, Other)
  Sender: FDA-Public Use
  Company Number: None

PATIENT
  Sex: Female
  Weight: 48.0813 kg

DRUGS (1)
  1. ZICAM PLUS COLD REMEDY - LIQUID LOZENGES [Suspect]
     Indication: NASOPHARYNGITIS
     Dosage: DAY 1 ONCE/3 HRS MOUTH : DAY 2 ONCE/4 HRS MOUTH
     Route: 048

REACTIONS (4)
  - DRUG INEFFECTIVE [None]
  - BRONCHITIS [None]
  - ANOSMIA [None]
  - HYPOSMIA [None]
